FAERS Safety Report 10901459 (Version 1)
Quarter: 2015Q1

REPORT INFORMATION
  Report Type: Spontaneous
  Country: US (occurrence: US)
  Receive Date: 20150310
  Receipt Date: 20150310
  Transmission Date: 20150721
  Serious: No
  Sender: FDA-Public Use
  Company Number: US-TEVA-545894USA

PATIENT
  Sex: Male

DRUGS (2)
  1. TREANDA [Suspect]
     Active Substance: BENDAMUSTINE HYDROCHLORIDE
     Indication: MANTLE CELL LYMPHOMA
     Dosage: DOSE AND FREQUENCY NOT PROVIDED
     Route: 065
  2. RITUXAN [Suspect]
     Active Substance: RITUXIMAB
     Indication: MANTLE CELL LYMPHOMA
     Dosage: DOSE AND FREQUENCY NOT PROVIDED
     Route: 065

REACTIONS (5)
  - Urticaria [Unknown]
  - Rash [Unknown]
  - Flushing [Unknown]
  - Erythema [Unknown]
  - Product use issue [Unknown]
